FAERS Safety Report 9105431 (Version 1)
Quarter: 2013Q1

REPORT INFORMATION
  Report Type: Report from Study
  Country: US (occurrence: US)
  Receive Date: 20130220
  Receipt Date: 20130220
  Transmission Date: 20140127
  Serious: Yes (Other)
  Sender: FDA-Public Use
  Company Number: US-PURDUE-USA-2012-0099155

PATIENT
  Age: 38 Year
  Sex: Male
  Weight: 98.41 kg

DRUGS (6)
  1. OXY CR [Suspect]
     Indication: PAIN
     Dosage: 20 MG, BID
     Route: 048
     Dates: start: 20121120, end: 20121130
  2. OXYCODONE HCL [Suspect]
     Indication: PAIN
     Dosage: 5 MG, PRN
     Route: 048
     Dates: start: 20121120, end: 20121129
  3. VITAMIN C                          /00008001/ [Concomitant]
     Indication: MEDICAL DIET
     Dosage: 1 TBSP, UNK
     Dates: start: 2011
  4. OSTEOFLEX                          /03317001/ [Concomitant]
     Indication: MEDICAL DIET
     Dosage: UNK
     Dates: start: 201208
  5. XANAX [Concomitant]
     Indication: ANXIETY
     Dosage: UNK
     Dates: start: 201211
  6. MAGNESIUM CITRATE [Concomitant]
     Indication: CONSTIPATION

REACTIONS (1)
  - Intervertebral disc protrusion [Unknown]
